FAERS Safety Report 12968012 (Version 1)
Quarter: 2016Q4

REPORT INFORMATION
  Report Type: Spontaneous
  Country: US (occurrence: US)
  Receive Date: 20161123
  Receipt Date: 20161123
  Transmission Date: 20170207
  Serious: No
  Sender: FDA-Public Use
  Company Number: PHEH2016US030369

PATIENT
  Age: 9 Year
  Sex: Male
  Weight: 38.56 kg

DRUGS (6)
  1. MELATONIN [Concomitant]
     Active Substance: MELATONIN
     Indication: RESTLESS LEGS SYNDROME
     Dosage: 3 MG, PRN
     Route: 048
  2. VITAMIN C [Concomitant]
     Active Substance: ASCORBIC ACID
     Indication: PRODUCT USED FOR UNKNOWN INDICATION
     Dosage: UNK UNK, QD (125 MG GUMMY, TWO GUMMIES BY MOUTH)
     Route: 048
  3. RITALIN [Suspect]
     Active Substance: METHYLPHENIDATE HYDROCHLORIDE
     Indication: PRODUCT USED FOR UNKNOWN INDICATION
     Dosage: 2.5 MG, QD
     Route: 048
  4. FOCALIN XR [Suspect]
     Active Substance: DEXMETHYLPHENIDATE HYDROCHLORIDE
     Indication: PRODUCT USED FOR UNKNOWN INDICATION
     Dosage: UNK
     Route: 065
  5. FERRITIN [Concomitant]
     Active Substance: FERRITIN
     Indication: RESTLESS LEGS SYNDROME
     Dosage: 1 DF, QD (ONE CHEWY BY MOUTH)
     Route: 048
  6. VITAMIN D [Concomitant]
     Active Substance: CHOLECALCIFEROL
     Indication: PRODUCT USED FOR UNKNOWN INDICATION
     Dosage: 2, DF,QD,1000 LU GUMMY
     Route: 048

REACTIONS (2)
  - Aggression [Unknown]
  - Drug ineffective [Unknown]

NARRATIVE: CASE EVENT DATE: 201605
